FAERS Safety Report 10291368 (Version 1)
Quarter: 2014Q3

REPORT INFORMATION
  Report Type: Spontaneous
  Country: FR (occurrence: FR)
  Receive Date: 20140710
  Receipt Date: 20140710
  Transmission Date: 20150326
  Serious: Yes (Hospitalization)
  Sender: FDA-Public Use
  Company Number: FR-BAYER-2014-100649

PATIENT
  Age: 37 Year
  Sex: Female

DRUGS (9)
  1. SEROPLEX [Concomitant]
     Active Substance: ESCITALOPRAM OXALATE
  2. LYRICA [Concomitant]
     Active Substance: PREGABALIN
  3. KETAMINE [Concomitant]
     Active Substance: KETAMINE
  4. PLITICAN [Concomitant]
     Active Substance: ALIZAPRIDE HYDROCHLORIDE
  5. TERCIAN [Concomitant]
     Active Substance: CYAMEMAZINE
  6. SOLU-MEDROL [Concomitant]
     Active Substance: METHYLPREDNISOLONE SODIUM SUCCINATE
  7. STIVARGA [Suspect]
     Active Substance: REGORAFENIB
     Indication: COLON CANCER METASTATIC
     Dosage: 120 UNK DAILY
     Route: 048
     Dates: start: 20140506, end: 20140521
  8. ACUPAN [Concomitant]
     Active Substance: NEFOPAM HYDROCHLORIDE
  9. SUFENTA [Concomitant]
     Active Substance: SUFENTANIL CITRATE

REACTIONS (3)
  - Polyneuropathy [Unknown]
  - Hypocalcaemia [Unknown]
  - Palmar-plantar erythrodysaesthesia syndrome [Unknown]

NARRATIVE: CASE EVENT DATE: 20140519
